FAERS Safety Report 7703660-2 (Version None)
Quarter: 2011Q3

REPORT INFORMATION
  Report Type: 
  Country: None (occurrence: None)
  Receive Date: 20110823
  Receipt Date: 20110819
  Transmission Date: 20111222
  Serious: Yes (Hospitalization)
  Sender: FDA-Public Use
  Company Number: US-PFIZER INC-US-WYE-H17403710

PATIENT
  Sex: Male
  Weight: 95.238 kg

DRUGS (15)
  1. ALTACE [Concomitant]
     Indication: HYPERTENSION
     Dosage: 2.5 MG, 1X/DAY
     Route: 048
     Dates: start: 20100701
  2. ALDACTONE [Concomitant]
     Indication: CARDIAC FAILURE CONGESTIVE
     Dosage: 25 MG, 1X/DAY
     Route: 048
     Dates: start: 20060101
  3. VOLTAREN [Concomitant]
     Indication: OSTEOARTHRITIS
     Dosage: 75 MG, AS NEEDED
     Route: 048
  4. BLINDED NO SUBJECT DRUG [Suspect]
     Indication: OSTEOARTHRITIS
     Dosage: UNK
     Route: 048
     Dates: start: 20081001, end: 20100720
  5. LOVAZA [Concomitant]
     Indication: MEDICAL DIET
     Dosage: UNK
     Route: 048
     Dates: start: 20010101
  6. BLINDED SD-6010 [Suspect]
     Indication: OSTEOARTHRITIS
     Dosage: UNK
     Route: 048
     Dates: start: 20081001, end: 20100720
  7. WELLBUTRIN [Concomitant]
     Dosage: UNK
     Route: 065
  8. LOPRESSOR [Concomitant]
     Indication: HYPERTENSION
     Dosage: 25 MG, 4X/DAY
     Route: 048
     Dates: start: 20100701
  9. CELEXA [Concomitant]
     Indication: DEPRESSION
     Dosage: 40 MG, 1X/DAY
     Route: 048
  10. CORDARONE [Suspect]
     Indication: VENTRICULAR TACHYCARDIA
     Dosage: 200 MG, 2X/DAY
     Route: 048
     Dates: start: 20100409, end: 20100721
  11. ASPIRIN [Concomitant]
     Indication: PROPHYLAXIS
     Dosage: 325 MG, 1X/DAY
     Route: 048
     Dates: start: 20010101
  12. RISPERDAL [Concomitant]
     Indication: BIPOLAR DISORDER
     Dosage: 3 MG, 1X/DAY
     Route: 048
     Dates: start: 20000101
  13. ZOCOR [Concomitant]
     Indication: HYPERLIPIDAEMIA
     Dosage: 80 MG, 1X/DAY
     Route: 048
     Dates: start: 20081105, end: 20100721
  14. PLACEBO [Suspect]
     Indication: OSTEOARTHRITIS
     Dosage: UNK
     Route: 048
     Dates: start: 20081001, end: 20100720
  15. AMBIEN [Concomitant]
     Indication: INSOMNIA
     Dosage: 10 MG, 1X/DAY
     Route: 048
     Dates: start: 20060101

REACTIONS (4)
  - URINARY TRACT INFECTION [None]
  - FATIGUE [None]
  - DEHYDRATION [None]
  - RHABDOMYOLYSIS [None]
